FAERS Safety Report 23067872 (Version 1)
Quarter: 2023Q4

REPORT INFORMATION
  Report Type: Spontaneous
  Country: US (occurrence: US)
  Receive Date: 20231016
  Receipt Date: 20231016
  Transmission Date: 20240110
  Serious: No
  Sender: FDA-Public Use
  Company Number: US-TAKEDA-2023TUS098812

PATIENT
  Sex: Female
  Weight: 82 kg

DRUGS (1)
  1. LIALDA [Suspect]
     Active Substance: MESALAMINE
     Indication: Colitis
     Dosage: 2 DOSAGE FORM, QD
     Route: 065

REACTIONS (1)
  - Diarrhoea [Unknown]
